FAERS Safety Report 5047068-X (Version None)
Quarter: 2006Q3

REPORT INFORMATION
  Report Type: 
  Country: None (occurrence: None)
  Receive Date: 20060703
  Receipt Date: 20060623
  Transmission Date: 20061208
  Serious: Yes (Death, Hospitalization, Other)
  Sender: FDA-Public Use
  Company Number: 2006054682

PATIENT
  Age: 47 Year
  Sex: Male
  Weight: 99.7913 kg

DRUGS (2)
  1. CELEBREX [Suspect]
     Indication: PAIN
     Dosage: (2 IN 1 D), ORAL
     Route: 048
     Dates: start: 20010101, end: 20040223
  2. CELEBREX [Suspect]
     Indication: PAIN IN EXTREMITY
     Dosage: (2 IN 1 D), ORAL
     Route: 048
     Dates: start: 20010101, end: 20040223

REACTIONS (10)
  - ANGIOPATHY [None]
  - CARDIOVASCULAR DISORDER [None]
  - CEREBRAL DISORDER [None]
  - CEREBROVASCULAR ACCIDENT [None]
  - CORONARY ARTERY DISEASE [None]
  - GASTROINTESTINAL DISORDER [None]
  - INJURY [None]
  - LUNG DISORDER [None]
  - PAIN IN EXTREMITY [None]
  - RENAL DISORDER [None]
